FAERS Safety Report 9305436 (Version 1)
Quarter: 2013Q2

REPORT INFORMATION
  Report Type: Spontaneous
  Country: US (occurrence: US)
  Receive Date: 20130523
  Receipt Date: 20130523
  Transmission Date: 20140414
  Serious: No
  Sender: FDA-Public Use
  Company Number: US-BAYER-2013-063677

PATIENT
  Age: 86 Year
  Sex: Female

DRUGS (1)
  1. ALEVE CAPLET [Suspect]
     Route: 048

REACTIONS (3)
  - Dizziness [Not Recovered/Not Resolved]
  - Somnolence [Not Recovered/Not Resolved]
  - Incorrect dose administered [None]
